FAERS Safety Report 11000104 (Version 2)
Quarter: 2015Q2

REPORT INFORMATION
  Report Type: Spontaneous
  Country: US (occurrence: US)
  Receive Date: 20150408
  Receipt Date: 20150504
  Transmission Date: 20150821
  Serious: Yes (Congenital Anomaly, Other)
  Sender: FDA-Public Use
  Company Number: US-ELI_LILLY_AND_COMPANY-US201503010399

PATIENT
  Age: 0 Year

DRUGS (2)
  1. PROZAC [Suspect]
     Active Substance: FLUOXETINE HYDROCHLORIDE
     Indication: DEPRESSION
     Dosage: 20 MG, QD
     Route: 064
     Dates: start: 20090706
  2. IRON [Concomitant]
     Active Substance: IRON
     Dosage: UNK, UNKNOWN
     Route: 064
     Dates: start: 20090902

REACTIONS (3)
  - Tachycardia [Unknown]
  - Talipes [Unknown]
  - Foetal exposure during pregnancy [Recovered/Resolved]

NARRATIVE: CASE EVENT DATE: 20090706
